FAERS Safety Report 7351287-7 (Version None)
Quarter: 2011Q1

REPORT INFORMATION
  Report Type: 
  Country: None (occurrence: None)
  Receive Date: 20110314
  Receipt Date: 20110216
  Transmission Date: 20110831
  Serious: No
  Sender: FDA-Public Use
  Company Number: US-B.I. PHARMACEUTICALS,INC./RIDGEFIELD-2011-BP-06004BP

PATIENT
  Sex: Male

DRUGS (1)
  1. FLOMAX [Suspect]
     Indication: DYSURIA
     Dosage: 0.4 MG
     Route: 048
     Dates: start: 20110101, end: 20110201

REACTIONS (2)
  - EJACULATION FAILURE [None]
  - CYSTITIS [None]
